FAERS Safety Report 9781156 (Version 1)
Quarter: 2013Q4

REPORT INFORMATION
  Report Type: Spontaneous
  Country: US (occurrence: None)
  Receive Date: 20131223
  Receipt Date: 20131223
  Transmission Date: 20140711
  Serious: Yes (Other)
  Sender: FDA-Public Use
  Company Number: None

PATIENT
  Age: 41 Year
  Sex: Female
  Weight: 65.77 kg

DRUGS (1)
  1. PROGESTERONE [Suspect]
     Indication: PREMENSTRUAL SYNDROME
     Dosage: 1 PILL  ONC DAILY  TAKEN BY MOUTH
     Route: 048

REACTIONS (2)
  - Panic attack [None]
  - Anxiety [None]
